FAERS Safety Report 8592056-X (Version None)
Quarter: 2012Q3

REPORT INFORMATION
  Report Type: 
  Country: None (occurrence: None)
  Receive Date: 20120814
  Receipt Date: 20120806
  Transmission Date: 20120928
  Serious: Yes (Hospitalization)
  Sender: FDA-Public Use
  Company Number: FR-ASTELLAS-2012EU005667

PATIENT
  Sex: Male

DRUGS (4)
  1. CELLCEPT [Suspect]
     Indication: IMMUNOSUPPRESSION
     Dosage: UNK
     Route: 065
     Dates: start: 20100201
  2. PROGRAF [Suspect]
     Indication: IMMUNOSUPPRESSION
     Dosage: UNK
     Route: 065
     Dates: start: 20100201
  3. ANTI-HBS HUMAN IMMUNE GLOBULIN [Concomitant]
     Dosage: UNK
     Route: 065
  4. BARACLUDE [Concomitant]
     Dosage: UNK
     Route: 065

REACTIONS (2)
  - MANTLE CELL LYMPHOMA [None]
  - DISEASE RECURRENCE [None]
